FAERS Safety Report 26166971 (Version 1)
Quarter: 2025Q4

REPORT INFORMATION
  Report Type: Other
  Country: US (occurrence: US)
  Receive Date: 20251217
  Receipt Date: 20251217
  Transmission Date: 20260118
  Serious: Yes (Death)
  Sender: TRAVERE THERAPEUTICS
  Company Number: US-TRAVERE-2025TVT02429

PATIENT
  Age: 71 Year
  Sex: Male

DRUGS (3)
  1. FILSPARI [Suspect]
     Active Substance: SPARSENTAN
     Indication: Chronic kidney disease
     Dates: start: 202408
  2. FILSPARI [Suspect]
     Active Substance: SPARSENTAN
     Indication: Proteinuria
  3. FILSPARI [Suspect]
     Active Substance: SPARSENTAN
     Indication: Haematuria

REACTIONS (2)
  - Cardiac arrest [Fatal]
  - Product use in unapproved indication [Unknown]

NARRATIVE: CASE EVENT DATE: 20240801
